FAERS Safety Report 8923263 (Version 2)
Quarter: 2012Q4

REPORT INFORMATION
  Report Type: 
  Country: FR (occurrence: FR)
  Receive Date: 20121123
  Receipt Date: 20121205
  Transmission Date: 20130627
  Serious: Yes (Other)
  Sender: FDA-Public Use
  Company Number: FR-JNJFOC-20121109492

PATIENT
  Age: 16 Year
  Sex: Female
  Weight: 36 kg

DRUGS (5)
  1. REMICADE [Suspect]
     Indication: CROHN^S DISEASE
     Route: 042
     Dates: end: 20120829
  2. REMICADE [Suspect]
     Indication: CROHN^S DISEASE
     Dosage: first infusion
     Route: 042
     Dates: start: 20120719
  3. REMICADE [Suspect]
     Indication: CROHN^S DISEASE
     Dosage: 2nrd infusion
     Route: 042
     Dates: start: 20120802
  4. REMICADE [Suspect]
     Indication: CROHN^S DISEASE
     Dosage: 3rd infusion
     Route: 042
     Dates: start: 20120829
  5. AZOTHIOPRINE [Concomitant]
     Indication: CROHN^S DISEASE
     Route: 065

REACTIONS (5)
  - Asphyxia [Recovered/Resolved]
  - Malaise [Recovered/Resolved]
  - Dyspnoea [Recovered/Resolved]
  - Infusion related reaction [Recovered/Resolved]
  - Type I hypersensitivity [Recovered/Resolved]
